FAERS Safety Report 6436042-4 (Version None)
Quarter: 2009Q4

REPORT INFORMATION
  Report Type: 
  Country: None (occurrence: None)
  Receive Date: 20091111
  Receipt Date: 20090922
  Transmission Date: 20100525
  Serious: No
  Sender: FDA-Public Use
  Company Number: US-BAYER-200916351BCC

PATIENT
  Sex: Female

DRUGS (1)
  1. ALEVE [Suspect]
     Indication: MUSCLE SPASMS
     Dosage: TOOK TOO MANY TABLETS
     Route: 048
     Dates: start: 20090921

REACTIONS (1)
  - NO ADVERSE EVENT [None]
